FAERS Safety Report 8383745-0 (Version None)
Quarter: 2012Q1

REPORT INFORMATION
  Report Type: 
  Country: None (occurrence: None)
  Receive Date: 20120323
  Receipt Date: 20110323
  Transmission Date: 20120608
  Serious: Yes (Hospitalization, Other)
  Sender: FDA-Public Use
  Company Number: 163-21880-11030561

PATIENT
  Age: 68 Year
  Sex: Male
  Weight: 83.9154 kg

DRUGS (10)
  1. METOPROLOL TARTRATE [Concomitant]
  2. VITAMIN B12 [Concomitant]
  3. ASPIRIN [Concomitant]
  4. SIMVASTATIN [Concomitant]
  5. ACYCLOVIR [Concomitant]
  6. GABAPENTIN [Concomitant]
  7. LISINOPRIL [Concomitant]
  8. REVLIMID [Suspect]
     Indication: MULTIPLE MYELOMA
     Dosage: 10 MG, X28 DAYS, PO 10 MG, X28 DAYS, PO
     Route: 048
     Dates: start: 20100826, end: 20110101
  9. REVLIMID [Suspect]
     Indication: MULTIPLE MYELOMA
     Dosage: 10 MG, X28 DAYS, PO 10 MG, X28 DAYS, PO
     Route: 048
     Dates: start: 20091118
  10. OMEPRAZOLE [Concomitant]

REACTIONS (6)
  - COUGH [None]
  - PNEUMONIA PRIMARY ATYPICAL [None]
  - PNEUMONIA [None]
  - PYREXIA [None]
  - FATIGUE [None]
  - STRONGYLOIDIASIS [None]
